FAERS Safety Report 16862900 (Version 1)
Quarter: 2019Q3

REPORT INFORMATION
  Report Type: Spontaneous
  Country: FR (occurrence: FR)
  Receive Date: 20190927
  Receipt Date: 20190927
  Transmission Date: 20191005
  Serious: Yes (Hospitalization, Other)
  Sender: FDA-Public Use
  Company Number: FR-ZYDUS-033606

PATIENT
  Age: 33 Year
  Sex: Male

DRUGS (7)
  1. LOXAPINE. [Concomitant]
     Active Substance: LOXAPINE
     Indication: AUTISM SPECTRUM DISORDER
     Route: 065
  2. ALPHA-METHYLTRYPTAMINE [Interacting]
     Active Substance: INDOPAN
     Indication: PRODUCT USED FOR UNKNOWN INDICATION
     Route: 065
  3. MIRTAZAPINE. [Suspect]
     Active Substance: MIRTAZAPINE
     Indication: PRODUCT USED FOR UNKNOWN INDICATION
     Route: 065
  4. METHADONE [Concomitant]
     Active Substance: METHADONE HYDROCHLORIDE
     Indication: AUTISM SPECTRUM DISORDER
     Route: 065
  5. NORTRIPTYLINE [Suspect]
     Active Substance: NORTRIPTYLINE
     Indication: PRODUCT USED FOR UNKNOWN INDICATION
     Route: 065
  6. LORAZEPAM. [Concomitant]
     Active Substance: LORAZEPAM
     Indication: AUTISM SPECTRUM DISORDER
     Route: 065
  7. AMANTADINE. [Suspect]
     Active Substance: AMANTADINE HYDROCHLORIDE
     Indication: PRODUCT USED FOR UNKNOWN INDICATION
     Route: 065

REACTIONS (12)
  - Rhabdomyolysis [Recovering/Resolving]
  - Agitation [Recovering/Resolving]
  - Hyperthermia [Recovering/Resolving]
  - Serotonin syndrome [Recovering/Resolving]
  - Renal impairment [Recovering/Resolving]
  - Tachycardia [Recovering/Resolving]
  - Mydriasis [Recovering/Resolving]
  - Drug interaction [Unknown]
  - Acidosis [Recovering/Resolving]
  - Hepatic function abnormal [Recovered/Resolved]
  - Hyperhidrosis [Recovering/Resolving]
  - Hypercapnia [Recovering/Resolving]
